FAERS Safety Report 9752379 (Version 1)
Quarter: 2013Q4

REPORT INFORMATION
  Report Type: Spontaneous
  Country: US (occurrence: US)
  Receive Date: 20131213
  Receipt Date: 20131213
  Transmission Date: 20140711
  Serious: No
  Sender: FDA-Public Use
  Company Number: US-PFIZER INC-2013355922

PATIENT
  Age: 52 Year
  Sex: Male
  Weight: 103 kg

DRUGS (4)
  1. LYRICA [Suspect]
     Indication: DIABETIC NEUROPATHY
     Dosage: 50 MG, 2X/DAY
     Dates: start: 201311, end: 2013
  2. LYRICA [Suspect]
     Dosage: 75 MG, 2X/DAY
     Dates: start: 2013, end: 2013
  3. LYRICA [Suspect]
     Dosage: UNK
     Dates: start: 2013, end: 2013
  4. LEVEMIR [Suspect]
     Indication: DIABETES MELLITUS
     Dosage: 30 MG, DAILY

REACTIONS (2)
  - Anger [Recovered/Resolved]
  - Blood glucose increased [Unknown]
